FAERS Safety Report 9317844 (Version 1)
Quarter: 2013Q2

REPORT INFORMATION
  Report Type: Spontaneous
  Country: US (occurrence: US)
  Receive Date: 20130530
  Receipt Date: 20130530
  Transmission Date: 20140414
  Serious: No
  Sender: FDA-Public Use
  Company Number: US-NOVEN-12US005400

PATIENT
  Age: 13 Year
  Sex: Male

DRUGS (2)
  1. DAYTRANA [Suspect]
     Indication: ATTENTION DEFICIT/HYPERACTIVITY DISORDER
     Dosage: 15 MG, UNK
  2. DAYTRANA [Suspect]
     Dosage: 20 MG, UNK

REACTIONS (2)
  - Change in sustained attention [Not Recovered/Not Resolved]
  - Drug ineffective [Not Recovered/Not Resolved]
